FAERS Safety Report 24000155 (Version 1)
Quarter: 2024Q2

REPORT INFORMATION
  Report Type: Spontaneous
  Country: US (occurrence: None)
  Receive Date: 20240620
  Receipt Date: 20240620
  Transmission Date: 20240716
  Serious: Yes (Death)
  Sender: FDA-Public Use
  Company Number: None

PATIENT
  Age: 63 Year
  Sex: Female
  Weight: 40.05 kg

DRUGS (11)
  1. MUCINEX [Suspect]
     Active Substance: GUAIFENESIN
     Indication: Bronchitis chronic
     Dosage: FREQUENCY : TWICE A DAY;?
     Route: 048
     Dates: start: 20240314, end: 20240614
  2. ALBUTEROL SULFATE [Concomitant]
     Active Substance: ALBUTEROL SULFATE
     Dates: start: 20190101
  3. FUROSEMIDE [Concomitant]
     Active Substance: FUROSEMIDE
     Dates: start: 20180101
  4. GABAPENTIN [Concomitant]
     Active Substance: GABAPENTIN
     Dates: start: 20210101
  5. LISINOPRIL [Concomitant]
     Active Substance: LISINOPRIL
     Dates: start: 20190101
  6. METOPROLOL [Concomitant]
     Active Substance: METOPROLOL
     Dates: start: 20200101
  7. OXYCODONE [Concomitant]
     Active Substance: OXYCODONE\OXYCODONE HYDROCHLORIDE
     Dates: start: 20220101
  8. SERTRALINE [Concomitant]
     Active Substance: SERTRALINE HYDROCHLORIDE
     Dates: start: 20170101
  9. SYMBICORT [Concomitant]
     Active Substance: BUDESONIDE\FORMOTEROL FUMARATE DIHYDRATE
     Dates: start: 20200101
  10. SPIRIVA [Concomitant]
     Active Substance: TIOTROPIUM BROMIDE MONOHYDRATE
     Dates: start: 20240101
  11. ESCITALOPRAM [Concomitant]
     Active Substance: ESCITALOPRAM OXALATE
     Dates: start: 20240101

REACTIONS (1)
  - Death [None]

NARRATIVE: CASE EVENT DATE: 20240619
